FAERS Safety Report 7007538-1 (Version None)
Quarter: 2010Q3

REPORT INFORMATION
  Report Type: 
  Country: None (occurrence: None)
  Receive Date: 20100915
  Receipt Date: 20100908
  Transmission Date: 20110219
  Serious: Yes (Hospitalization)
  Sender: FDA-Public Use
  Company Number: 2010SP048076

PATIENT
  Age: 64 Year
  Sex: Female

DRUGS (4)
  1. TEMODAL [Suspect]
     Indication: GLIOBLASTOMA
     Dosage: PO
     Route: 048
     Dates: start: 20071001, end: 20080101
  2. BEVACIZUMAB (BAVECIZUMAB) [Suspect]
     Indication: GLIOBLASTOMA
     Dosage: 660 MG IV
     Route: 042
     Dates: start: 20080201, end: 20080901
  3. IRINOTECAN HCL [Suspect]
     Indication: GLIOBLASTOMA
     Dosage: 220 MG IV
     Route: 042
     Dates: start: 20080201, end: 20080901
  4. CORTANCYL [Concomitant]

REACTIONS (2)
  - HYPERTENSION [None]
  - NEUROPATHY PERIPHERAL [None]
